FAERS Safety Report 20117782 (Version 1)
Quarter: 2021Q4

REPORT INFORMATION
  Report Type: Spontaneous
  Country: US (occurrence: US)
  Receive Date: 20211126
  Receipt Date: 20211126
  Transmission Date: 20220303
  Serious: No
  Sender: FDA-Public Use
  Company Number: US-JNJFOC-20211146602

PATIENT
  Age: 65 Year
  Sex: Female
  Weight: 80.29 kg

DRUGS (8)
  1. IBUPROFEN [Suspect]
     Active Substance: IBUPROFEN
     Indication: Pain in extremity
     Route: 048
     Dates: start: 20211015
  2. TYLENOL EXTRA STRENGTH [Concomitant]
     Active Substance: ACETAMINOPHEN
     Indication: Pain in extremity
     Route: 048
     Dates: start: 20211015
  3. IBRANCE [Concomitant]
     Active Substance: PALBOCICLIB
     Indication: Breast cancer
     Dosage: 125MG ONCE A DAY BY MOUTH FOR THREE WEEKS ON, THEN?OFF 7 DAYS
     Route: 048
     Dates: start: 202109
  4. LETROZOLE [Concomitant]
     Active Substance: LETROZOLE
     Indication: Antioestrogen therapy
     Dosage: 2.5MG ONCE A DAY BY MOUTH
     Route: 048
     Dates: start: 202109
  5. LOSARTAN [Concomitant]
     Active Substance: LOSARTAN
     Indication: Hypertension
     Dosage: 25MG ONCE A DAY BY MOUTH
     Route: 048
     Dates: start: 20210811
  6. AMLODIPINE [Concomitant]
     Active Substance: AMLODIPINE BESYLATE
     Indication: Hypertension
     Dosage: 10MG ONCE A DAY BY MOUTH
     Route: 048
     Dates: start: 20210811
  7. ERGOCALCIFEROL [Concomitant]
     Active Substance: ERGOCALCIFEROL
     Indication: Product used for unknown indication
     Dosage: 50MCG ONCE A DAY BY MOUTH
     Route: 048
  8. METFORMIN [Concomitant]
     Active Substance: METFORMIN HYDROCHLORIDE
     Indication: Diabetes mellitus
     Route: 065
     Dates: start: 20210830

REACTIONS (1)
  - Incorrect dose administered [Unknown]

NARRATIVE: CASE EVENT DATE: 20211015
